FAERS Safety Report 9057790 (Version 2)
Quarter: 2013Q4

REPORT INFORMATION
  Report Type: Spontaneous
  Country: JP (occurrence: JP)
  Receive Date: 20130204
  Receipt Date: 20131227
  Transmission Date: 20140711
  Serious: Yes (Hospitalization, Other)
  Sender: FDA-Public Use
  Company Number: JP-VERTEX PHARMACEUTICALS INC.-2013-001506

PATIENT
  Age: 69 Year
  Sex: Female

DRUGS (13)
  1. TELAVIC [Suspect]
     Indication: CHRONIC HEPATITIS C
     Dosage: 1500 MG, QD
     Route: 048
     Dates: start: 20120926, end: 20121015
  2. TELAVIC [Suspect]
     Dosage: 750 MG, QD
     Route: 048
     Dates: start: 20121016, end: 20121026
  3. REBETOL [Suspect]
     Indication: CHRONIC HEPATITIS C
     Dosage: 400 MG, QD
     Route: 048
     Dates: start: 20120926, end: 20121009
  4. REBETOL [Suspect]
     Dosage: 200 MG, QD
     Route: 048
     Dates: start: 20121010, end: 20130826
  5. PEGINTRON [Suspect]
     Indication: CHRONIC HEPATITIS C
     Dosage: 1.5 ?G/KG, QW
     Route: 058
     Dates: start: 20120926, end: 20130820
  6. SERMION [Concomitant]
     Dosage: 10 MG, QD
     Route: 048
  7. TSUMURA SHAKUYAKUKANZOTO EXTRACT GRANUELS FOR ETHICAL USE [Concomitant]
     Dosage: 5 G, QD
     Route: 048
     Dates: end: 20121018
  8. METHYCOBAL [Concomitant]
     Dosage: 1500 ?G, QD
     Route: 048
  9. AMARYL [Concomitant]
     Dosage: 2 MG, QD
     Route: 048
     Dates: end: 20120929
  10. METGLUCO [Concomitant]
     Dosage: 750 MG, QD
     Route: 048
     Dates: end: 20120929
  11. JANUVIA [Concomitant]
     Dosage: 50 MG, QD
     Route: 048
  12. L-CARTIN [Concomitant]
     Dosage: 1800 MG, QD
     Route: 048
     Dates: end: 20121108
  13. URSO [Concomitant]
     Dosage: 600 MG, QD
     Route: 048

REACTIONS (5)
  - Guillain-Barre syndrome [Unknown]
  - Headache [Recovered/Resolved]
  - Muscular weakness [Not Recovered/Not Resolved]
  - Decreased appetite [Recovered/Resolved]
  - Nausea [Recovered/Resolved]
